FAERS Safety Report 5891766-2 (Version None)
Quarter: 2008Q3

REPORT INFORMATION
  Report Type: 
  Country: None (occurrence: None)
  Receive Date: 20080922
  Receipt Date: 20080910
  Transmission Date: 20090109
  Serious: Yes (Hospitalization, Other)
  Sender: FDA-Public Use
  Company Number: DE-PFIZER INC-2008071733

PATIENT
  Sex: Female

DRUGS (6)
  1. ZELDOX (CAPSULES) [Suspect]
     Indication: MANIA
     Dosage: DAILY DOSE:100MG-FREQ:DAILY
     Route: 048
     Dates: start: 20080813, end: 20080826
  2. ZELDOX (CAPSULES) [Suspect]
     Indication: PSYCHOTIC DISORDER
  3. ZELDOX (CAPSULES) [Suspect]
     Indication: BIPOLAR DISORDER
  4. SPIRIVA [Concomitant]
  5. ALL OTHER THERAPEUTIC PRODUCTS [Concomitant]
     Route: 048
  6. SYMBICORT [Concomitant]
     Route: 055

REACTIONS (5)
  - EXTRAPYRAMIDAL DISORDER [None]
  - NAUSEA [None]
  - SEDATION [None]
  - URINARY INCONTINENCE [None]
  - VOMITING [None]
